FAERS Safety Report 4914613-1 (Version None)
Quarter: 2006Q1

REPORT INFORMATION
  Report Type: 
  Country: None (occurrence: None)
  Receive Date: 20060216
  Receipt Date: 20051114
  Transmission Date: 20060701
  Serious: Yes (Hospitalization)
  Sender: FDA-Public Use
  Company Number: US-MERCK-0511USA02445

PATIENT
  Age: 69 Year
  Sex: Female
  Weight: 71 kg

DRUGS (18)
  1. VIOXX [Suspect]
     Route: 048
     Dates: start: 20040201, end: 20040701
  2. [THERAPY UNSPECIFIED] [Concomitant]
     Route: 065
  3. METOPROLOL [Concomitant]
     Route: 065
  4. PREMARIN [Concomitant]
     Route: 065
  5. CLARINEX [Concomitant]
     Route: 065
  6. ALBUTEROL [Concomitant]
     Route: 055
  7. PAXIL CR [Concomitant]
     Route: 065
  8. HYDROCORTISONE [Concomitant]
     Route: 065
  9. ANASPAZ [Concomitant]
     Route: 065
  10. ULTRACET [Concomitant]
     Route: 065
  11. POTASSIUM (UNSPECIFIED) [Concomitant]
     Route: 065
  12. ENULOSE [Concomitant]
     Route: 065
  13. CEPHALEXIN [Concomitant]
     Route: 065
  14. DITROPAN XL [Concomitant]
     Route: 065
  15. ZITHROMAX [Concomitant]
     Route: 065
  16. METHYLPREDNISOLONE [Concomitant]
     Route: 065
  17. BEXTRA [Concomitant]
     Route: 065
  18. DETROL [Concomitant]
     Route: 065

REACTIONS (3)
  - CARDIAC DISORDER [None]
  - CHEST PAIN [None]
  - QUADRUPLE VESSEL BYPASS GRAFT [None]
